FAERS Safety Report 7892705-5 (Version None)
Quarter: 2011Q4

REPORT INFORMATION
  Report Type: 
  Country: None (occurrence: None)
  Receive Date: 20111102
  Receipt Date: 20111025
  Transmission Date: 20120403
  Serious: Yes (Death)
  Sender: FDA-Public Use
  Company Number: CIP-2011-00896

PATIENT

DRUGS (2)
  1. DOCETAXEL [Concomitant]
  2. CARBOPLATIN [Suspect]
     Indication: LUNG NEOPLASM MALIGNANT
     Dosage: AREA UNDER THE CYRVE = 5 MG/ML X  MIN (DAY 1 OF 21-DAY CYCLE (MAX 6 CYCLES))

REACTIONS (1)
  - DEATH [None]
